FAERS Safety Report 16669454 (Version 7)
Quarter: 2022Q4

REPORT INFORMATION
  Report Type: Spontaneous
  Country: JP (occurrence: JP)
  Receive Date: 20190805
  Receipt Date: 20221208
  Transmission Date: 20230112
  Serious: Yes (Other)
  Sender: FDA-Public Use
  Company Number: JP-PFIZER INC-2019270425

PATIENT
  Age: 75 Year
  Sex: Female
  Weight: 59 kg

DRUGS (4)
  1. LORBRENA [Suspect]
     Active Substance: LORLATINIB
     Indication: Non-small cell lung cancer
     Dosage: 100 MG, DAILY
     Route: 048
     Dates: start: 20190607, end: 20190703
  2. LORBRENA [Suspect]
     Active Substance: LORLATINIB
     Dosage: UNK
     Dates: start: 20190613, end: 20190627
  3. LORBRENA [Suspect]
     Active Substance: LORLATINIB
     Dosage: 75 MG, UNK
     Dates: start: 20190704
  4. PREDONINE [Concomitant]
     Active Substance: PREDNISOLONE
     Dosage: 10 UNK DAILY
     Route: 048

REACTIONS (12)
  - Intracranial aneurysm [Unknown]
  - Hallucination [Recovered/Resolved]
  - Hallucination, auditory [Recovered/Resolved]
  - Radiation pneumonitis [Unknown]
  - Neoplasm progression [Unknown]
  - Somnolence [Unknown]
  - Depressive symptom [Recovering/Resolving]
  - Hyperlipidaemia [Recovered/Resolved]
  - Pain in extremity [Unknown]
  - Oedema peripheral [Recovering/Resolving]
  - Irritability [Unknown]
  - Oedema [Unknown]

NARRATIVE: CASE EVENT DATE: 20190703
